FAERS Safety Report 16978302 (Version 3)
Quarter: 2020Q1

REPORT INFORMATION
  Report Type: Spontaneous
  Country: GB (occurrence: GB)
  Receive Date: 20191031
  Receipt Date: 20200122
  Transmission Date: 20200409
  Serious: Yes (Disabling, Other)
  Sender: FDA-Public Use
  Company Number: GB-ALLERGAN-1943364US

PATIENT
  Sex: Female
  Weight: 57 kg

DRUGS (2)
  1. CITALOPRAM HYDROBROMIDE - BP [Suspect]
     Active Substance: CITALOPRAM HYDROBROMIDE
     Indication: ANXIETY
     Dosage: 10 MG
     Route: 048
  2. CITALOPRAM HYDROBROMIDE - BP [Suspect]
     Active Substance: CITALOPRAM HYDROBROMIDE
     Dosage: 20 MG
     Route: 048
     Dates: start: 201707

REACTIONS (3)
  - Depression [Recovering/Resolving]
  - Pain [Recovering/Resolving]
  - Depressed mood [Recovering/Resolving]

NARRATIVE: CASE EVENT DATE: 201905
